FAERS Safety Report 9055203 (Version 1)
Quarter: 2013Q1

REPORT INFORMATION
  Report Type: Spontaneous
  Country: PL (occurrence: PL)
  Receive Date: 20130206
  Receipt Date: 20130206
  Transmission Date: 20140127
  Serious: Yes (Life-Threatening)
  Sender: FDA-Public Use
  Company Number: PL-PFIZER INC-2013044010

PATIENT
  Age: 72 Year
  Sex: Male
  Weight: 57 kg

DRUGS (3)
  1. DOXORUBICIN HCL [Suspect]
     Indication: LUNG NEOPLASM MALIGNANT
     Dosage: 53.81 MG, UNK
     Route: 042
     Dates: start: 20121218, end: 20121218
  2. VINCRISTINE SULFATE [Suspect]
     Indication: LUNG NEOPLASM MALIGNANT
     Dosage: 1.5 MG, UNK
     Route: 042
     Dates: start: 20121218, end: 20121218
  3. ENDOXAN [Suspect]
     Indication: LUNG NEOPLASM MALIGNANT
     Dosage: 1195.8 MG, UNK
     Route: 042
     Dates: start: 20121218, end: 20121218

REACTIONS (3)
  - Pancytopenia [Recovering/Resolving]
  - Asthenia [Recovering/Resolving]
  - Odynophagia [Recovering/Resolving]
